FAERS Safety Report 10853622 (Version 1)
Quarter: 2015Q1

REPORT INFORMATION
  Report Type: Spontaneous
  Country: CA (occurrence: US)
  Receive Date: 20150223
  Receipt Date: 20150223
  Transmission Date: 20150721
  Serious: Yes (Death, Hospitalization, Other)
  Sender: FDA-Public Use
  Company Number: 2015SP000105

PATIENT
  Age: 41 Year
  Sex: Female

DRUGS (2)
  1. CARISOPRODOL. [Suspect]
     Active Substance: CARISOPRODOL
     Indication: PRODUCT USED FOR UNKNOWN INDICATION
     Route: 048
  2. MELOXICAM. [Suspect]
     Active Substance: MELOXICAM
     Indication: PRODUCT USED FOR UNKNOWN INDICATION
     Route: 048

REACTIONS (11)
  - Completed suicide [Fatal]
  - Toxicity to various agents [Fatal]
  - Pulmonary oedema [Unknown]
  - Brain injury [Fatal]
  - Metabolic acidosis [Unknown]
  - Cerebral ischaemia [Fatal]
  - Bronchopneumonia [Unknown]
  - Hypokalaemia [Unknown]
  - Cardiac arrest [Unknown]
  - Sinus tachycardia [Unknown]
  - Unresponsive to stimuli [Not Recovered/Not Resolved]

NARRATIVE: CASE EVENT DATE: 2013
